FAERS Safety Report 13559183 (Version 3)
Quarter: 2017Q4

REPORT INFORMATION
  Report Type: Spontaneous
  Country: JP (occurrence: JP)
  Receive Date: 20170518
  Receipt Date: 20171228
  Transmission Date: 20180320
  Serious: Yes (Other)
  Sender: FDA-Public Use
  Company Number: JP-CONCORDIA PHARMACEUTICALS INC.-E2B_00008126

PATIENT
  Age: 16 Year
  Sex: Female

DRUGS (6)
  1. PREDNISOLONE. [Suspect]
     Active Substance: PREDNISOLONE
     Dosage: LOW DOSE
     Route: 048
  2. METHOTREXATE. [Suspect]
     Active Substance: METHOTREXATE
  3. METHOTREXATE. [Suspect]
     Active Substance: METHOTREXATE
  4. PREDNISOLONE. [Suspect]
     Active Substance: PREDNISOLONE
     Route: 048
  5. METHYLPREDNISOLONE. [Suspect]
     Active Substance: METHYLPREDNISOLONE
     Dosage: THREE COURSES OF METHYLPREDNISOLONE PULSE THERAPY (ONE COURSE = 30 MG/KG/DAY X3 DAYS/WEEK)
  6. CYCLOPHOSPHAMIDE. [Suspect]
     Active Substance: CYCLOPHOSPHAMIDE
     Dosage: 1 COURSE = 500 MG/M2/DAY X1 DAY/MONTH
     Route: 042

REACTIONS (1)
  - Body height below normal [Unknown]
